FAERS Safety Report 17702613 (Version 1)
Quarter: 2020Q2

REPORT INFORMATION
  Report Type: Report from Study
  Country: None (occurrence: MX)
  Receive Date: 20200424
  Receipt Date: 20200424
  Transmission Date: 20200714
  Serious: Yes (Death, Hospitalization)
  Sender: FDA-Public Use
  Company Number: MX-ABBVIE-20K-107-3375591-00

PATIENT
  Age: 25 Year
  Sex: Female
  Weight: 34 kg

DRUGS (4)
  1. HUMIRA [Suspect]
     Active Substance: ADALIMUMAB
     Indication: CROHN^S DISEASE
     Route: 058
     Dates: start: 2010, end: 201909
  2. ERYTHROPOIETIN [Concomitant]
     Active Substance: ERYTHROPOIETIN
     Indication: WHITE BLOOD CELL COUNT DECREASED
  3. PREDNISONE. [Concomitant]
     Active Substance: PREDNISONE
     Indication: CROHN^S DISEASE
  4. FILGRASTIM [Concomitant]
     Active Substance: FILGRASTIM
     Indication: CROHN^S DISEASE

REACTIONS (5)
  - Anal fistula [Not Recovered/Not Resolved]
  - Pain [Unknown]
  - Post procedural haemorrhage [Fatal]
  - Post procedural infection [Fatal]
  - Growth disorder [Unknown]

NARRATIVE: CASE EVENT DATE: 2019
